FAERS Safety Report 8514745-5 (Version None)
Quarter: 2012Q3

REPORT INFORMATION
  Report Type: 
  Country: None (occurrence: None)
  Receive Date: 20120717
  Receipt Date: 20120711
  Transmission Date: 20120928
  Serious: Yes (Hospitalization)
  Sender: FDA-Public Use
  Company Number: US-BAYER-2011-111894

PATIENT
  Age: 23 Year
  Sex: Female
  Weight: 46.259 kg

DRUGS (11)
  1. DROSPIRENONE AND ETHINYL ESTRADIOL [Suspect]
     Indication: MENSTRUATION IRREGULAR
  2. YAZ [Suspect]
     Dosage: UNK
     Dates: start: 20080901
  3. DROSPIRENONE AND ETHINYL ESTRADIOL [Suspect]
     Indication: OLIGOMENORRHOEA
     Dosage: UNK
     Dates: start: 20080901, end: 20081001
  4. BACTRIM [Concomitant]
     Indication: PROPHYLAXIS URINARY TRACT INFECTION
  5. GENTAMICIN [Concomitant]
     Indication: INFECTION
     Dosage: 10 CC
  6. ENTEX PSE [Concomitant]
     Dosage: 120-600 MG 1 BID AS NEEDE
     Route: 048
  7. DITROPAN [Concomitant]
     Indication: INFECTION
     Dosage: 5 MG, INSTILLED INTO BLADDER MIXED WITH GENTAMICIN
  8. VICODIN [Concomitant]
     Dosage: 5/500 1 QHS PRN
     Route: 048
  9. BACTRIM [Concomitant]
     Indication: INFECTION
     Dosage: SINGLE STRENGTH 1 EVERY DAY
  10. GENTAMICIN [Concomitant]
     Dosage: 0.9 MG/ML %, 1 TID WITH DITROPAN DISSOLVED INTO SOLUTION
  11. OVER-THE-COUNTER PAIN MEDICATION [Concomitant]
     Indication: HEADACHE

REACTIONS (8)
  - DEEP VEIN THROMBOSIS [None]
  - ANXIETY [None]
  - FEAR [None]
  - PAIN [None]
  - EMOTIONAL DISTRESS [None]
  - PSYCHOLOGICAL TRAUMA [None]
  - THROMBOPHLEBITIS [None]
  - INJURY [None]
